FAERS Safety Report 20542757 (Version 1)
Quarter: 2022Q1

REPORT INFORMATION
  Report Type: Other
  Country: US (occurrence: None)
  Receive Date: 20220302
  Receipt Date: 20220302
  Transmission Date: 20220423
  Serious: No
  Sender: FDA-Public Use
  Company Number: US-ROCHE-3036118

PATIENT
  Age: 36 Year
  Sex: Female

DRUGS (2)
  1. OCREVUS [Suspect]
     Active Substance: OCRELIZUMAB
     Indication: Relapsing-remitting multiple sclerosis
     Dosage: EVERY 2 WEEKS AND 600 MG EVERY 6 MONTHS?DATE OF TREATMENT: 09/APR/2021 AND 29/SEP/2021
     Route: 042
     Dates: start: 20210326
  2. LEMTRADA [Concomitant]
     Active Substance: ALEMTUZUMAB

REACTIONS (1)
  - COVID-19 [Recovered/Resolved]

NARRATIVE: CASE EVENT DATE: 20220101
